FAERS Safety Report 6690400-1 (Version None)
Quarter: 2010Q2

REPORT INFORMATION
  Report Type: 
  Country: None (occurrence: None)
  Receive Date: 20100421
  Receipt Date: 20100412
  Transmission Date: 20101027
  Serious: Yes (Hospitalization)
  Sender: FDA-Public Use
  Company Number: BE-ASTRAZENECA-2010SE11634

PATIENT
  Age: 14786 Day
  Sex: Male

DRUGS (3)
  1. SEROQUEL XR [Suspect]
     Indication: PSYCHOTIC DISORDER
     Route: 048
  2. SEROQUEL XR [Suspect]
     Dosage: 20 TABLETS OF 300 MG (6 G) OVER THE PERIOD OF TWO DAYS
     Route: 048
  3. SEROQUEL XR [Suspect]
     Route: 048

REACTIONS (3)
  - DELIRIUM [None]
  - DISORIENTATION [None]
  - DRUG ABUSE [None]
